FAERS Safety Report 7459548-8 (Version None)
Quarter: 2011Q2

REPORT INFORMATION
  Report Type: 
  Country: None (occurrence: None)
  Receive Date: 20110504
  Receipt Date: 20110504
  Transmission Date: 20111010
  Serious: Yes (Hospitalization)
  Sender: FDA-Public Use
  Company Number: None

PATIENT
  Sex: Female
  Weight: 104.3 kg

DRUGS (2)
  1. CARBOPLATIN [Suspect]
     Dosage: 754 MG
  2. TAXOL [Suspect]
     Dosage: 332.5 MG

REACTIONS (1)
  - ANAEMIA [None]
